FAERS Safety Report 8764022 (Version 1)
Quarter: 2012Q4

REPORT INFORMATION
  Report Type: 
  Country: US (occurrence: US)
  Receive Date: 20120831
  Receipt Date: 20120831
  Transmission Date: 20130627
  Serious: No
  Sender: FDA-Public Use
  Company Number: US-BAUSCH-2012BL001914

PATIENT
  Age: 44 Year
  Sex: Female

DRUGS (1)
  1. CROMOLYN SODIUM [Suspect]
     Dosage: daily dose: 1 SPRAY

REACTIONS (2)
  - Drug administration error [None]
  - Ocular discomfort [Unknown]
